FAERS Safety Report 24189475 (Version 1)
Quarter: 2024Q3

REPORT INFORMATION
  Report Type: Spontaneous
  Country: US (occurrence: US)
  Receive Date: 20240808
  Receipt Date: 20240808
  Transmission Date: 20241017
  Serious: Yes (Other)
  Sender: PROGENICS PHARMACEUTICALS
  Company Number: US-PROGENICS PHARMACEUTICALS, INC.-LMI-2024-00977

PATIENT
  Sex: Male

DRUGS (2)
  1. PYLARIFY [Suspect]
     Active Substance: PIFLUFOLASTAT F-18
     Indication: Product used for unknown indication
     Dosage: UNK
     Dates: start: 202005, end: 202403
  2. PYLARIFY [Suspect]
     Active Substance: PIFLUFOLASTAT F-18
     Indication: Prostate cancer recurrent

REACTIONS (1)
  - Arthropathy [Unknown]
